FAERS Safety Report 6924351-1 (Version None)
Quarter: 2010Q3

REPORT INFORMATION
  Report Type: 
  Country: None (occurrence: None)
  Receive Date: 20100811
  Receipt Date: 20100811
  Transmission Date: 20110219
  Serious: No
  Sender: FDA-Public Use
  Company Number: None

PATIENT
  Sex: Female
  Weight: 52.3451 kg

DRUGS (4)
  1. AUGMENTIN '875' [Suspect]
     Indication: ODYNOPHAGIA
     Dosage: 875MG BID PO
     Route: 048
     Dates: start: 20080428, end: 20080508
  2. AUGMENTIN '875' [Suspect]
     Indication: OROPHARYNGEAL PAIN
     Dosage: 875MG BID PO
     Route: 048
     Dates: start: 20080428, end: 20080508
  3. IBUPROFEN [Concomitant]
  4. DIFLUCAN [Concomitant]

REACTIONS (1)
  - RASH PRURITIC [None]
